FAERS Safety Report 5841339-2 (Version None)
Quarter: 2008Q3

REPORT INFORMATION
  Report Type: 
  Country: None (occurrence: None)
  Receive Date: 20080731
  Receipt Date: 20080515
  Transmission Date: 20090109
  Serious: No
  Sender: FDA-Public Use
  Company Number: US200805002768

PATIENT
  Age: 64 Year
  Sex: Male
  Weight: 158.7 kg

DRUGS (3)
  1. BYETTA [Suspect]
     Indication: TYPE 2 DIABETES MELLITUS
     Dosage: 5 UG, 2/D, SUBCUTANEOUS;10 UG, 2/D, SUBCUTANEOUS
     Route: 058
     Dates: start: 20080409, end: 20080501
  2. BYETTA [Suspect]
     Indication: TYPE 2 DIABETES MELLITUS
     Dosage: 5 UG, 2/D, SUBCUTANEOUS;10 UG, 2/D, SUBCUTANEOUS
     Route: 058
     Dates: start: 20080501
  3. METFORMIN HCL [Concomitant]

REACTIONS (4)
  - DECREASED APPETITE [None]
  - INCORRECT DOSE ADMINISTERED [None]
  - NAUSEA [None]
  - WEIGHT DECREASED [None]
